FAERS Safety Report 5997002-0 (Version None)
Quarter: 2008Q4

REPORT INFORMATION
  Report Type: 
  Country: None (occurrence: None)
  Receive Date: 20081205
  Receipt Date: 20081201
  Transmission Date: 20090506
  Serious: Yes (Hospitalization)
  Sender: FDA-Public Use
  Company Number: WAES 0812FRA00004

PATIENT
  Age: 50 Year
  Sex: Male

DRUGS (6)
  1. CAP VORINOSTAT [Suspect]
     Indication: NON-SMALL CELL LUNG CANCER
     Dosage: 400MG/DAILY
     Route: 048
     Dates: start: 20081119, end: 20081128
  2. CISPLATIN [Suspect]
     Indication: NON-SMALL CELL LUNG CANCER
     Dosage: 140 MG/DAILY
     Route: 042
     Dates: start: 20081121, end: 20081121
  3. GEMCITABINE [Suspect]
     Indication: NON-SMALL CELL LUNG CANCER
     Dosage: 2400 MG/DAILY 2300 MG/DAILY
     Route: 042
     Dates: start: 20081121, end: 20081121
  4. GEMCITABINE [Suspect]
     Indication: NON-SMALL CELL LUNG CANCER
     Dosage: 2400 MG/DAILY 2300 MG/DAILY
     Route: 042
     Dates: start: 20081128, end: 20081128
  5. BROMAZEPAM [Concomitant]
  6. ZOLPIDEM TARTRATE [Concomitant]

REACTIONS (1)
  - ASTHENIA [None]
